FAERS Safety Report 5588434-3 (Version None)
Quarter: 2008Q1

REPORT INFORMATION
  Report Type: 
  Country: None (occurrence: None)
  Receive Date: 20080111
  Receipt Date: 20080102
  Transmission Date: 20080703
  Serious: Yes (Hospitalization)
  Sender: FDA-Public Use
  Company Number: US-ABBOTT-08P-163-0432431-00

PATIENT
  Sex: Female
  Weight: 54.48 kg

DRUGS (6)
  1. HUMIRA [Suspect]
     Indication: CROHN'S DISEASE
     Route: 058
     Dates: start: 20070301, end: 20070301
  2. HUMIRA [Suspect]
     Route: 058
     Dates: start: 20070301, end: 20070301
  3. HUMIRA [Suspect]
     Route: 058
     Dates: start: 20070401
  4. MESALAMINE [Concomitant]
     Indication: CROHN'S DISEASE
     Route: 048
  5. IRON [Concomitant]
     Indication: MINERAL SUPPLEMENTATION
     Route: 048
  6. M.V.I. [Concomitant]
     Indication: VITAMIN SUPPLEMENTATION
     Route: 048

REACTIONS (3)
  - ABDOMINAL PAIN [None]
  - INJECTION SITE PAIN [None]
  - UMBILICAL HERNIA [None]
